FAERS Safety Report 25628053 (Version 1)
Quarter: 2025Q3

REPORT INFORMATION
  Report Type: Spontaneous
  Country: US (occurrence: None)
  Receive Date: 20250731
  Receipt Date: 20250731
  Transmission Date: 20251020
  Serious: Yes (Hospitalization)
  Sender: FDA-CTU
  Company Number: None

PATIENT
  Age: 51 Year
  Sex: Male

DRUGS (1)
  1. ARANESP [Suspect]
     Active Substance: DARBEPOETIN ALFA
     Dosage: OTHER FREQUENCY : EVERY 4 WEEKS;?

REACTIONS (1)
  - Hospice care [None]
